FAERS Safety Report 19830534 (Version 1)
Quarter: 2021Q3

REPORT INFORMATION
  Report Type: Spontaneous
  Country: US (occurrence: US)
  Receive Date: 20210914
  Receipt Date: 20210914
  Transmission Date: 20211014
  Serious: Yes (Hospitalization)
  Sender: FDA-Public Use
  Company Number: None

PATIENT
  Age: 70 Year
  Sex: Female

DRUGS (8)
  1. CHLORHEX GLU [Concomitant]
     Active Substance: CHLORHEXIDINE GLUCONATE
  2. METRONIDAZOL [Concomitant]
     Active Substance: METRONIDAZOLE
  3. FLUOCINONIDE CRE [Concomitant]
  4. SUTAB [Concomitant]
     Active Substance: MAGNESIUM SULFATE\POTASSIUM CHLORIDE\SODIUM SULFATE
  5. ENBREL [Suspect]
     Active Substance: ETANERCEPT
     Indication: RHEUMATOID ARTHRITIS
     Dosage: OTHER DOSE:1 PEN;?
     Route: 058
     Dates: start: 20161228
  6. MOMETASONE CRE [Concomitant]
  7. AMOXICLLLIN, [Concomitant]
  8. HYDROCO/APAP [Concomitant]
     Active Substance: ACETAMINOPHEN\HYDROCODONE

REACTIONS (1)
  - Wrist surgery [None]

NARRATIVE: CASE EVENT DATE: 20210526
